FAERS Safety Report 10401920 (Version 3)
Quarter: 2014Q3

REPORT INFORMATION
  Report Type: Spontaneous
  Country: CD (occurrence: None)
  Receive Date: 20140820
  Receipt Date: 20140905
  Transmission Date: 20150326
  Serious: Yes (Other)
  Sender: FDA-Public Use
  Company Number: 2014ST000108

PATIENT
  Age: 40 Year
  Sex: Male

DRUGS (1)
  1. ZEGERID [Suspect]
     Active Substance: OMEPRAZOLE\SODIUM BICARBONATE
     Indication: GASTRIC ULCER
     Route: 048
     Dates: start: 20140719, end: 20140720

REACTIONS (6)
  - Vomiting [None]
  - Abdominal pain [None]
  - Pain [None]
  - Renal failure acute [None]
  - Tinnitus [None]
  - Back pain [None]

NARRATIVE: CASE EVENT DATE: 20140719
